FAERS Safety Report 15869836 (Version 2)
Quarter: 2019Q1

REPORT INFORMATION
  Report Type: Spontaneous
  Country: FR (occurrence: FR)
  Receive Date: 20190125
  Receipt Date: 20190128
  Transmission Date: 20190417
  Serious: Yes (Death, Life-Threatening, Hospitalization, Disabling, Other)
  Sender: FDA-Public Use
  Company Number: PHHY2019FR016739

PATIENT
  Age: 27 Year
  Sex: Female
  Weight: 55 kg

DRUGS (5)
  1. FLAGYL [Suspect]
     Active Substance: METRONIDAZOLE\METRONIDAZOLE HYDROCHLORIDE
     Indication: GINGIVITIS ULCERATIVE
     Dosage: 1 G, QD
     Route: 048
     Dates: start: 20160721, end: 20160729
  2. LEELOO [Concomitant]
     Active Substance: ETHINYL ESTRADIOL\LEVONORGESTREL
     Indication: PRODUCT USED FOR UNKNOWN INDICATION
     Dosage: 0.1 MG/0.02 MG
     Route: 048
  3. OMEPRAZOLE. [Suspect]
     Active Substance: OMEPRAZOLE
     Indication: DYSPEPSIA
     Dosage: 1 DF, QD
     Route: 048
     Dates: start: 20160728
  4. PAROEX [Concomitant]
     Active Substance: CHLORHEXIDINE GLUCONATE
     Indication: PRODUCT USED FOR UNKNOWN INDICATION
     Dosage: UNK
     Route: 065
  5. PARACETAMOL [Concomitant]
     Active Substance: ACETAMINOPHEN
     Indication: PRODUCT USED FOR UNKNOWN INDICATION
     Dosage: UNK
     Route: 065

REACTIONS (23)
  - Dyspepsia [Unknown]
  - Insomnia [Recovered/Resolved]
  - Confusional state [Unknown]
  - Major depression [Unknown]
  - Feeling abnormal [Unknown]
  - Neuralgia [Recovered/Resolved with Sequelae]
  - Disturbance in attention [Unknown]
  - Decreased appetite [Recovered/Resolved]
  - Anorectal disorder [Recovered/Resolved with Sequelae]
  - Fatigue [Unknown]
  - Anxiety [Unknown]
  - Paraplegia [Recovered/Resolved with Sequelae]
  - Suicide attempt [Recovered/Resolved with Sequelae]
  - Micturition disorder [Recovered/Resolved with Sequelae]
  - Feeling of despair [Unknown]
  - Decreased appetite [Unknown]
  - Suicide attempt [Unknown]
  - Obsessive thoughts [Unknown]
  - Affective disorder [Unknown]
  - Nightmare [Unknown]
  - Vertigo [Unknown]
  - Completed suicide [Fatal]
  - Suicidal ideation [Unknown]

NARRATIVE: CASE EVENT DATE: 201607
